FAERS Safety Report 8200325-8 (Version None)
Quarter: 2012Q1

REPORT INFORMATION
  Report Type: 
  Country: None (occurrence: None)
  Receive Date: 20120312
  Receipt Date: 20120306
  Transmission Date: 20120608
  Serious: Yes (Disabling, Other)
  Sender: FDA-Public Use
  Company Number: US-PFIZER INC-2011301281

PATIENT
  Sex: Female
  Weight: 67.574 kg

DRUGS (7)
  1. PRISTIQ [Suspect]
     Dosage: 100 MG, 1X/DAY
     Route: 048
     Dates: end: 20111207
  2. LEVOTHYROXINE [Concomitant]
     Indication: THYROID DISORDER
     Dosage: 75 UG, 1X/DAY
  3. VIVELLE-DOT [Concomitant]
     Indication: HORMONE REPLACEMENT THERAPY
     Dosage: 0.05 MG, 2X/WEEK
  4. PRISTIQ [Suspect]
     Indication: DEPRESSION
     Dosage: 50 MG, 1X/DAY
     Route: 048
     Dates: start: 20080101
  5. PROMETRIUM [Concomitant]
     Indication: HORMONE REPLACEMENT THERAPY
     Dosage: 100 MG, DAILY
     Route: 048
  6. BUPROPION HYDROCHLORIDE [Concomitant]
     Indication: DEPRESSION
     Dosage: 150 MG, DAILY
     Dates: start: 20110501
  7. PRAVASTATIN [Concomitant]
     Indication: BLOOD CHOLESTEROL INCREASED
     Dosage: 100 MG, DAILY

REACTIONS (10)
  - DYSPHORIA [None]
  - MALAISE [None]
  - VERTIGO [None]
  - ACTIVITIES OF DAILY LIVING IMPAIRED [None]
  - AGITATION [None]
  - DIZZINESS POSTURAL [None]
  - PARAESTHESIA [None]
  - NAUSEA [None]
  - FEAR [None]
  - TINNITUS [None]
